FAERS Safety Report 20245084 (Version 1)
Quarter: 2021Q4

REPORT INFORMATION
  Report Type: Other
  Country: DE (occurrence: None)
  Receive Date: 20211229
  Receipt Date: 20211229
  Transmission Date: 20220303
  Serious: Yes (Other)
  Sender: FDA-Public Use
  Company Number: DE-ROCHE-2950625

PATIENT
  Age: 35 Year
  Sex: Female
  Weight: 113 kg

DRUGS (9)
  1. OCRELIZUMAB [Suspect]
     Active Substance: OCRELIZUMAB
     Indication: Relapsing-remitting multiple sclerosis
     Route: 065
     Dates: start: 20210423, end: 20210423
  2. FOLIC ACID [Concomitant]
     Active Substance: FOLIC ACID
     Indication: Prophylaxis
     Dates: start: 201901
  3. LEVOTHYROXINE SODIUM [Concomitant]
     Active Substance: LEVOTHYROXINE SODIUM
     Dates: start: 201908
  4. VENLAFAXINE HYDROCHLORIDE [Concomitant]
     Active Substance: VENLAFAXINE HYDROCHLORIDE
     Dates: start: 2015
  5. METHYLDOPA [Concomitant]
     Active Substance: METHYLDOPA
     Dates: start: 20210916, end: 20211014
  6. METHYLDOPA [Concomitant]
     Active Substance: METHYLDOPA
     Dates: start: 20211015
  7. ASPIRIN [Concomitant]
     Active Substance: ASPIRIN
     Dates: start: 20211015
  8. FERROUS SULFATE [Concomitant]
     Active Substance: FERROUS SULFATE
     Dates: start: 20211015
  9. COMIRNATY [Concomitant]
     Active Substance: TOZINAMERAN
     Indication: Prophylaxis
     Dates: start: 20210825, end: 20210915

REACTIONS (3)
  - Maternal exposure before pregnancy [Unknown]
  - Nasopharyngitis [Unknown]
  - Placenta praevia [Unknown]
